FAERS Safety Report 9682455 (Version 3)
Quarter: 2014Q1

REPORT INFORMATION
  Report Type: Spontaneous
  Country: US (occurrence: US)
  Receive Date: 20131112
  Receipt Date: 20140121
  Transmission Date: 20141002
  Serious: Yes (Hospitalization, Other)
  Sender: FDA-Public Use
  Company Number: US-009507513-1311USA002483

PATIENT
  Sex: Female

DRUGS (16)
  1. JANUMET [Suspect]
     Indication: DIABETES MELLITUS
     Dosage: 50MG/1000MG TWICE A DAY
     Route: 048
     Dates: start: 2011, end: 201309
  2. JANUVIA [Concomitant]
     Dosage: 100 MG, QD
     Dates: start: 201309
  3. REMERON [Concomitant]
     Route: 048
  4. GLIMEPIRIDE [Concomitant]
  5. LYRICA [Concomitant]
  6. PLAVIX [Concomitant]
  7. CYANOCOBALAMIN [Concomitant]
  8. VITAMIN D (UNSPECIFIED) [Concomitant]
  9. OXYGEN [Concomitant]
     Dosage: UNK, HS
  10. ASPIRIN [Concomitant]
  11. BYSTOLIC [Concomitant]
  12. ZOLOFT [Concomitant]
  13. CRESTOR [Concomitant]
  14. RAMIPRIL [Concomitant]
  15. XANAX [Concomitant]
  16. HYDROCODONE [Concomitant]

REACTIONS (5)
  - Hernia hiatus repair [Recovered/Resolved]
  - Splenectomy [Recovered/Resolved]
  - Cholecystectomy [Recovered/Resolved]
  - Hiatus hernia [Recovered/Resolved]
  - Pain [Recovered/Resolved]
